FAERS Safety Report 8082739-2 (Version None)
Quarter: 2012Q1

REPORT INFORMATION
  Report Type: 
  Country: None (occurrence: None)
  Receive Date: 20120127
  Receipt Date: 20110202
  Transmission Date: 20120608
  Serious: No
  Sender: FDA-Public Use
  Company Number: US-ABBOTT-11P-163-0703802-00

PATIENT
  Sex: Female
  Weight: 90.8 kg

DRUGS (17)
  1. HUMIRA [Suspect]
     Indication: CROHN'S DISEASE
     Dates: start: 20100101
  2. COLESTID [Concomitant]
     Indication: CROHN'S DISEASE
  3. PROBIOTIC [Concomitant]
     Indication: PRODUCT USED FOR UNKNOWN INDICATION
  4. MERCAPTOPURINE [Concomitant]
     Indication: CROHN'S DISEASE
  5. NEURONTIN [Concomitant]
     Indication: NEUROPATHY PERIPHERAL
  6. FENTANYL-100 [Concomitant]
     Indication: BACK DISORDER
  7. IRON [Concomitant]
     Indication: BLOOD IRON DECREASED
  8. PERCOCET [Concomitant]
     Indication: ARTHRALGIA
  9. VITAMIN D [Concomitant]
     Indication: VITAMIN SUPPLEMENTATION
  10. LOVAZA [Concomitant]
     Indication: PROPHYLAXIS
  11. MULTI-VITAMIN [Concomitant]
     Indication: PRODUCT USED FOR UNKNOWN INDICATION
  12. VITAMIN B-12 [Concomitant]
     Indication: VITAMIN B12 DEFICIENCY
     Route: 050
  13. SOMA [Concomitant]
     Indication: MUSCLE SPASMS
  14. NEXIUM [Concomitant]
     Indication: GASTROOESOPHAGEAL REFLUX DISEASE
  15. ASACOL [Concomitant]
     Indication: CROHN'S DISEASE
  16. CALCIUM [Concomitant]
     Indication: PRODUCT USED FOR UNKNOWN INDICATION
  17. MAGNESIUM OXIDE [Concomitant]
     Indication: MUSCLE SPASMS

REACTIONS (3)
  - VISION BLURRED [None]
  - EYE PRURITUS [None]
  - HEADACHE [None]
